FAERS Safety Report 17040494 (Version 5)
Quarter: 2020Q3

REPORT INFORMATION
  Report Type: Not Available
  Country: US (occurrence: US)
  Receive Date: 20191117
  Receipt Date: 20200908
  Transmission Date: 20201102
  Serious: No
  Sender: FDA-Public Use
  Company Number: US-NEUROCRINE BIOSCIENCES INC.-2019NBI03378

PATIENT
  Age: 83 Year
  Sex: Female

DRUGS (3)
  1. INGREZZA [Suspect]
     Active Substance: VALBENAZINE
     Indication: TARDIVE DYSKINESIA
     Route: 048
     Dates: start: 20170712, end: 20170719
  2. ELIQUIS [Concomitant]
     Active Substance: APIXABAN
     Route: 048
  3. INGREZZA [Suspect]
     Active Substance: VALBENAZINE
     Route: 048
     Dates: start: 20170720

REACTIONS (8)
  - Nasopharyngitis [Unknown]
  - Drug ineffective [Unknown]
  - Anxiety [Unknown]
  - Somnolence [Unknown]
  - Tardive dyskinesia [Not Recovered/Not Resolved]
  - Road traffic accident [Unknown]
  - Agitation [Unknown]
  - Sedation [Unknown]

NARRATIVE: CASE EVENT DATE: 2019
